FAERS Safety Report 11395916 (Version 1)
Quarter: 2015Q3

REPORT INFORMATION
  Report Type: Spontaneous
  Country: US (occurrence: None)
  Receive Date: 20150817
  Receipt Date: 20150817
  Transmission Date: 20151125
  Serious: Yes (Life-Threatening)
  Sender: FDA-Public Use
  Company Number: None

PATIENT
  Age: 47 Year
  Sex: Female
  Weight: 84.5 kg

DRUGS (1)
  1. AMOXICILLIN. [Suspect]
     Active Substance: AMOXICILLIN
     Indication: DIABETES MELLITUS
     Dates: start: 20120402, end: 20120406

REACTIONS (6)
  - Lip swelling [None]
  - Cough [None]
  - Dyspnoea [None]
  - Erythema [None]
  - Angioedema [None]
  - Swelling face [None]

NARRATIVE: CASE EVENT DATE: 20120406
